FAERS Safety Report 7282415-X (Version None)
Quarter: 2011Q1

REPORT INFORMATION
  Report Type: 
  Country: None (occurrence: None)
  Receive Date: 20110209
  Receipt Date: 20110128
  Transmission Date: 20110831
  Serious: Yes (Life-Threatening)
  Sender: FDA-Public Use
  Company Number: US-CELGENEUS-163-21880-11020065

PATIENT
  Sex: Male

DRUGS (3)
  1. LANOXIN [Concomitant]
     Route: 065
  2. COREG [Concomitant]
     Route: 065
  3. REVLIMID [Suspect]
     Indication: MYELODYSPLASTIC SYNDROME
     Route: 048
     Dates: start: 20091101

REACTIONS (2)
  - FULL BLOOD COUNT DECREASED [None]
  - DRUG INEFFECTIVE [None]
